FAERS Safety Report 23898179 (Version 1)
Quarter: 2024Q2

REPORT INFORMATION
  Report Type: Spontaneous
  Country: FR (occurrence: FR)
  Receive Date: 20240524
  Receipt Date: 20240524
  Transmission Date: 20240715
  Serious: Yes (Death)
  Sender: FDA-Public Use
  Company Number: None

PATIENT
  Age: 59 Year
  Sex: Male

DRUGS (2)
  1. QUETIAPINE FUMARATE [Suspect]
     Active Substance: QUETIAPINE FUMARATE
     Indication: Mental disorder
     Dosage: 50 MILLIGRAM, QD (50 MG/D)
     Route: 048
     Dates: start: 20240306
  2. MIRTAZAPINE [Suspect]
     Active Substance: MIRTAZAPINE
     Indication: Depression
     Dosage: 15 MILLIGRAM, QD (15MG/D)
     Route: 048
     Dates: start: 20240305

REACTIONS (2)
  - Cardiac arrest [Fatal]
  - Vomiting [Fatal]

NARRATIVE: CASE EVENT DATE: 20240301
